FAERS Safety Report 10759988 (Version 1)
Quarter: 2015Q1

REPORT INFORMATION
  Report Type: Report from Study
  Country: US (occurrence: US)
  Receive Date: 20150203
  Receipt Date: 20150203
  Transmission Date: 20150721
  Serious: Yes (Death, Other)
  Sender: FDA-Public Use
  Company Number: US-ROCHE-1530098

PATIENT
  Age: 61 Year
  Sex: Female

DRUGS (1)
  1. ALTEPLASE [Suspect]
     Active Substance: ALTEPLASE
     Indication: CEREBROVASCULAR ACCIDENT
     Route: 065

REACTIONS (2)
  - Cerebrovascular accident [Fatal]
  - CNS ventriculitis [Recovered/Resolved]

NARRATIVE: CASE EVENT DATE: 20130519
